FAERS Safety Report 23794977 (Version 1)
Quarter: 2024Q2

REPORT INFORMATION
  Report Type: Spontaneous
  Country: FR (occurrence: FR)
  Receive Date: 20240429
  Receipt Date: 20240429
  Transmission Date: 20240716
  Serious: Yes (Hospitalization)
  Sender: FDA-Public Use
  Company Number: FR-ARBOR PHARMACEUTICALS, LLC-FR-2024AZR000468

PATIENT
  Age: 40 Year
  Sex: Female
  Weight: 74 kg

DRUGS (6)
  1. TRIPTODUR [Suspect]
     Active Substance: TRIPTORELIN
     Indication: Controlled ovarian stimulation
     Dosage: 1 DOSAGE FORM
     Route: 058
     Dates: start: 20230618, end: 20230618
  2. TRIPTODUR [Suspect]
     Active Substance: TRIPTORELIN
  3. TRIPTODUR [Suspect]
     Active Substance: TRIPTORELIN
  4. CHORIOGONADOTROPIN ALFA [Suspect]
     Active Substance: CHORIOGONADOTROPIN ALFA
     Indication: Ovulation induction
     Dosage: 1 DOSAGE FORM
     Route: 058
     Dates: start: 20230618, end: 20230618
  5. GANIRELIX ACETATE [Suspect]
     Active Substance: GANIRELIX ACETATE
     Indication: Controlled ovarian stimulation
     Dosage: 1 DOSAGE FORM, IN 1 DAY
     Route: 058
     Dates: start: 20230614, end: 20230618
  6. FOLLITROPIN BETA [Suspect]
     Active Substance: FOLLITROPIN BETA
     Indication: Controlled ovarian stimulation
     Dosage: 225 INTERNATIONAL UNIT(S), IN 1 DAY
     Route: 058
     Dates: start: 20230609, end: 20230617

REACTIONS (3)
  - Ovarian hyperstimulation syndrome [Recovered/Resolved]
  - Abdominal pain [Recovered/Resolved]
  - Nausea [Recovered/Resolved]

NARRATIVE: CASE EVENT DATE: 20230620
